FAERS Safety Report 10364399 (Version 1)
Quarter: 2014Q3

REPORT INFORMATION
  Report Type: Spontaneous
  Country: US (occurrence: None)
  Receive Date: 20140804
  Receipt Date: 20140804
  Transmission Date: 20150326
  Serious: Yes (Death)
  Sender: FDA-Public Use
  Company Number: None

PATIENT
  Age: 65 Year
  Sex: Female
  Weight: 68.04 kg

DRUGS (2)
  1. METOPROLOL TARTRATE. [Suspect]
     Active Substance: METOPROLOL TARTRATE
     Indication: HEART RATE INCREASED
     Dosage: THERAPY?1/13/14?1/15/14 DEATH OCCURED
     Route: 048
     Dates: start: 20140113, end: 20140115
  2. METOPROLOL TARTRATE. [Suspect]
     Active Substance: METOPROLOL TARTRATE
     Indication: BLOOD PRESSURE
     Dosage: THERAPY?1/13/14?1/15/14 DEATH OCCURED
     Route: 048
     Dates: start: 20140113, end: 20140115

REACTIONS (3)
  - Dyspnoea [None]
  - Myocardial infarction [None]
  - Respiratory disorder [None]

NARRATIVE: CASE EVENT DATE: 20140115
